FAERS Safety Report 23879149 (Version 1)
Quarter: 2024Q2

REPORT INFORMATION
  Report Type: Spontaneous
  Country: None (occurrence: US)
  Receive Date: 20240521
  Receipt Date: 20240521
  Transmission Date: 20240715
  Serious: No
  Sender: FDA-Public Use
  Company Number: US-DENDREON PHARMACEUTICAL LLC-2023DEN000249

PATIENT

DRUGS (10)
  1. PROVENGE [Suspect]
     Active Substance: SIPULEUCEL-T
     Indication: Prostate cancer metastatic
     Dosage: DOSE 1
     Route: 042
     Dates: start: 20230911, end: 20230911
  2. XARELTO [Concomitant]
     Active Substance: RIVAROXABAN
     Indication: Thrombosis prophylaxis
     Dosage: UNK, UNKNOWN
     Route: 065
  3. MORPHINE [Concomitant]
     Active Substance: MORPHINE
     Indication: Arthralgia
     Dosage: UNK, UNKNOWN
     Route: 065
  4. MELOXICAM [Concomitant]
     Active Substance: MELOXICAM
     Indication: Arthralgia
     Dosage: UNK, UNKNOWN
     Route: 065
  5. VALIUM [Concomitant]
     Active Substance: DIAZEPAM
     Indication: Sleep disorder
     Dosage: UNK, PRN
     Route: 065
  6. BENADRYL [Suspect]
     Active Substance: DIPHENHYDRAMINE HYDROCHLORIDE
     Indication: Premedication
     Dosage: 50 MILLIGRAM, SINGLE
     Route: 048
     Dates: start: 20230911, end: 20230911
  7. BENADRYL [Suspect]
     Active Substance: DIPHENHYDRAMINE HYDROCHLORIDE
     Dosage: 25 MILLIGRAM, SINGLE
     Route: 042
     Dates: start: 20230911, end: 20230911
  8. TYLENOL [Concomitant]
     Active Substance: ACETAMINOPHEN
     Indication: Premedication
     Dosage: 650 MILLIGRAM, SINGLE
     Route: 048
     Dates: start: 20230911, end: 20230911
  9. PEPCID [Concomitant]
     Active Substance: FAMOTIDINE
     Indication: Premedication
     Dosage: 20 MILLIGRAM, SINGLE
     Route: 048
     Dates: start: 20230911, end: 20230911
  10. HUMAN RED BLOOD CELL [Concomitant]
     Active Substance: HUMAN RED BLOOD CELL
     Indication: Haemoglobin decreased
     Dosage: 200 ML, SINGLE
     Route: 042
     Dates: start: 20230921, end: 20230921

REACTIONS (4)
  - Confusional state [Recovered/Resolved]
  - Dizziness [Recovering/Resolving]
  - Tachycardia [Recovered/Resolved]
  - Asthenia [Recovering/Resolving]

NARRATIVE: CASE EVENT DATE: 20230911
